FAERS Safety Report 11116321 (Version 18)
Quarter: 2017Q1

REPORT INFORMATION
  Report Type: Report from Study
  Country: AT (occurrence: AT)
  Receive Date: 20150515
  Receipt Date: 20170324
  Transmission Date: 20170428
  Serious: Yes (Death, Hospitalization, Other)
  Sender: FDA-Public Use
  Company Number: AT-INCYTE CORPORATION-2015IN001195

PATIENT
  Age: 72 Year
  Sex: Female
  Weight: 70 kg

DRUGS (219)
  1. JAKAVI [Suspect]
     Active Substance: RUXOLITINIB
     Dosage: 5 MG, BID
     Route: 065
  2. JAKAVI [Suspect]
     Active Substance: RUXOLITINIB
     Dosage: 5 MG, UNK
     Route: 065
     Dates: start: 20150210, end: 20150301
  3. DIGIMERCK [Concomitant]
     Active Substance: DIGITOXIN
     Dosage: UNK
     Route: 065
     Dates: start: 20110112
  4. DAFLON//DIOSMIN [Concomitant]
     Dosage: 1 DF, BID (1-0-1)
  5. EFECTIN [Concomitant]
     Active Substance: VENLAFAXINE HYDROCHLORIDE
     Dosage: 75 MG, QD (1-0-0)
  6. LASIX [Concomitant]
     Active Substance: FUROSEMIDE
     Indication: PRODUCT USED FOR UNKNOWN INDICATION
     Dosage: UNKNOWN
     Route: 065
  7. LASIX [Concomitant]
     Active Substance: FUROSEMIDE
     Dosage: 40 MG, BIW (2X WEEKLY 1-0-0)
  8. SPIRIVA [Concomitant]
     Active Substance: TIOTROPIUM BROMIDE MONOHYDRATE
     Indication: CHRONIC OBSTRUCTIVE PULMONARY DISEASE
     Dosage: UNKNOWN
     Route: 065
  9. SPIRIVA [Concomitant]
     Active Substance: TIOTROPIUM BROMIDE MONOHYDRATE
     Dosage: UNK
     Route: 065
     Dates: start: 20061218
  10. VALSARCOMP [Concomitant]
     Active Substance: HYDROCHLOROTHIAZIDE\VALSARTAN
     Dosage: 1 DF, UNK
  11. VALSARCOMP [Concomitant]
     Active Substance: HYDROCHLOROTHIAZIDE\VALSARTAN
     Dosage: 1 DF, QD (1-0-0)
  12. TRITTICO [Concomitant]
     Active Substance: TRAZODONE HYDROCHLORIDE
     Dosage: 150 MG, QD(0-0-0-1)
     Route: 065
  13. TRITTICO [Concomitant]
     Active Substance: TRAZODONE HYDROCHLORIDE
     Dosage: 150 MG, QD(0-0-0-1)
     Route: 065
  14. TRITTICO [Concomitant]
     Active Substance: TRAZODONE HYDROCHLORIDE
     Dosage: 150 MG, QD(0-0-0-1)
  15. TRITTICO [Concomitant]
     Active Substance: TRAZODONE HYDROCHLORIDE
     Dosage: 150 MG, QD(0-0-0-1)
  16. PANTOPRAZOL [Concomitant]
     Active Substance: PANTOPRAZOLE SODIUM
     Dosage: 20 MG, BID (1-0-1)
     Route: 065
  17. PANTOPRAZOL [Concomitant]
     Active Substance: PANTOPRAZOLE SODIUM
     Dosage: 20 MG, BID (1-0-1)
     Route: 065
  18. PANTOPRAZOL [Concomitant]
     Active Substance: PANTOPRAZOLE SODIUM
     Dosage: 20 MG, BID (1-0-1)
  19. PANTOPRAZOL [Concomitant]
     Active Substance: PANTOPRAZOLE SODIUM
     Dosage: 20 MG, BID (1-0-1)
  20. PANTOPRAZOL [Concomitant]
     Active Substance: PANTOPRAZOLE SODIUM
     Dosage: 20 MG, BID (1-0-1)
  21. ELOMEL [Concomitant]
     Dosage: 1000 ML, BID (1X1)
     Route: 042
  22. ELOMEL [Concomitant]
     Dosage: 1000 ML, BID (1X1)
     Route: 042
  23. COLDISTOP [Concomitant]
     Dosage: UNK, TID
     Route: 045
  24. COLDISTOP [Concomitant]
     Dosage: UNK, TID
     Route: 045
  25. STERIMAR [Concomitant]
     Active Substance: SEA WATER
     Dosage: 5X DAILY
     Route: 045
  26. PARKEMED [Concomitant]
     Active Substance: MEFENAMIC ACID
     Dosage: UNK
     Route: 005
  27. NEUPRO [Concomitant]
     Active Substance: ROTIGOTINE
     Indication: RESTLESS LEGS SYNDROME
     Dosage: UNK
     Route: 065
     Dates: start: 20130626
  28. OLEOVIT D3 [Concomitant]
     Active Substance: CHOLECALCIFEROL
     Indication: VITAMIN D DEFICIENCY
     Dosage: UNK
     Route: 065
     Dates: start: 20131217, end: 20140504
  29. PANTOPRAZOLE [Concomitant]
     Active Substance: PANTOPRAZOLE SODIUM
     Dosage: UNK
     Route: 065
     Dates: start: 20140505
  30. PANTOPRAZOLE [Concomitant]
     Active Substance: PANTOPRAZOLE SODIUM
     Dosage: UNK
     Route: 065
     Dates: start: 20140505
  31. JAKAVI [Suspect]
     Active Substance: RUXOLITINIB
     Indication: MYELOFIBROSIS
     Dosage: 10 MG, QD
     Route: 065
  32. EUTHYROX [Concomitant]
     Active Substance: LEVOTHYROXINE SODIUM
     Dosage: UNK
     Route: 065
     Dates: start: 20000517
  33. EUTHYROX [Concomitant]
     Active Substance: LEVOTHYROXINE SODIUM
     Dosage: 1.25 DF QD (1 ? -0 -0)
  34. DIGIMERCK [Concomitant]
     Active Substance: DIGITOXIN
     Indication: ATRIAL FIBRILLATION
     Dosage: UNKNOWN
     Route: 065
  35. TEBOFORTAN [Concomitant]
     Active Substance: GINKGO
     Dosage: 1 DF, QD (0-1-0)
  36. EFECTIN [Concomitant]
     Active Substance: VENLAFAXINE HYDROCHLORIDE
     Dosage: 75 MG, QD (1-0-0)
     Route: 065
  37. EFECTIN [Concomitant]
     Active Substance: VENLAFAXINE HYDROCHLORIDE
     Dosage: 75 MG, QD (1-0-0)
  38. EFECTIN [Concomitant]
     Active Substance: VENLAFAXINE HYDROCHLORIDE
     Dosage: 75 MG, QD (1-0-0)
  39. EFECTIN [Concomitant]
     Active Substance: VENLAFAXINE HYDROCHLORIDE
     Dosage: 75 MG, QD (1-0-0)
  40. EFECTIN [Concomitant]
     Active Substance: VENLAFAXINE HYDROCHLORIDE
     Dosage: 75 MG, QD (1-0-0)
  41. EFECTIN [Concomitant]
     Active Substance: VENLAFAXINE HYDROCHLORIDE
     Dosage: UNK
  42. LASIX [Concomitant]
     Active Substance: FUROSEMIDE
     Dosage: 40 MG, BIW (2X WEEKLY 1-0-0)
  43. UROSIN [Concomitant]
     Active Substance: ALLOPURINOL
     Dosage: UNK
     Route: 065
     Dates: start: 20140505
  44. TRITTICO [Concomitant]
     Active Substance: TRAZODONE HYDROCHLORIDE
     Dosage: 150 MG, QD(0-0-0-1)
  45. TRITTICO [Concomitant]
     Active Substance: TRAZODONE HYDROCHLORIDE
     Dosage: 150 MG, QD(0-0-0-1)
  46. PANTOPRAZOL [Concomitant]
     Active Substance: PANTOPRAZOLE SODIUM
     Indication: PRODUCT USED FOR UNKNOWN INDICATION
     Dosage: UNK
     Route: 065
  47. PANTOPRAZOL [Concomitant]
     Active Substance: PANTOPRAZOLE SODIUM
     Dosage: 20 MG, BID (1-0-1)
  48. ELOMEL [Concomitant]
     Dosage: 1000 ML, BID (1X1)
     Route: 042
  49. ELOMEL [Concomitant]
     Dosage: 1000 ML, BID (1X1)
     Route: 042
  50. COLDISTOP [Concomitant]
     Dosage: UNK
     Route: 045
  51. COLDISTOP [Concomitant]
     Dosage: UNK, TID
     Route: 045
  52. STERIMAR [Concomitant]
     Active Substance: SEA WATER
     Dosage: 5X DAILY
     Route: 045
  53. STERIMAR [Concomitant]
     Active Substance: SEA WATER
     Dosage: 5X DAILY
     Route: 045
  54. EFFECTIN [Concomitant]
     Active Substance: VENLAFAXINE HYDROCHLORIDE
     Indication: DEPRESSION
     Dosage: UNK
     Route: 065
     Dates: start: 20090505
  55. PANTOPRAZOLE [Concomitant]
     Active Substance: PANTOPRAZOLE SODIUM
     Indication: PRODUCT USED FOR UNKNOWN INDICATION
     Dosage: UNK
     Route: 065
     Dates: start: 20140505
  56. PANTOPRAZOLE [Concomitant]
     Active Substance: PANTOPRAZOLE SODIUM
     Dosage: UNK
     Route: 065
     Dates: start: 20140505
  57. JAKAVI [Suspect]
     Active Substance: RUXOLITINIB
     Dosage: 10 MG, UNK
     Route: 065
     Dates: start: 20140618, end: 20150209
  58. JAKAVI [Suspect]
     Active Substance: RUXOLITINIB
     Dosage: 5 MG, UNK
     Route: 065
     Dates: start: 20150302, end: 20150409
  59. JAKAVI [Suspect]
     Active Substance: RUXOLITINIB
     Dosage: UNK
     Route: 065
     Dates: start: 20150410
  60. EUTHYROX [Concomitant]
     Active Substance: LEVOTHYROXINE SODIUM
     Indication: PRODUCT USED FOR UNKNOWN INDICATION
     Dosage: 100 UG
     Route: 065
  61. DAFLON//DIOSMIN [Concomitant]
     Dosage: 1 DF, BID (1-0-1)
     Route: 065
  62. TEBOFORTAN [Concomitant]
     Active Substance: GINKGO
     Indication: PRODUCT USED FOR UNKNOWN INDICATION
     Dosage: UNKNOWN
     Route: 065
  63. EFECTIN [Concomitant]
     Active Substance: VENLAFAXINE HYDROCHLORIDE
     Dosage: 75 MG, QD (1-0-0)
  64. EFECTIN [Concomitant]
     Active Substance: VENLAFAXINE HYDROCHLORIDE
     Dosage: 75 MG, QD (1-0-0)
  65. LASIX [Concomitant]
     Active Substance: FUROSEMIDE
     Dosage: 40 MG, BIW (2X WEEKLY 1-0-0)
  66. VALSARCOMP [Concomitant]
     Active Substance: HYDROCHLOROTHIAZIDE\VALSARTAN
     Dosage: 1 DF, QD (1-0-0)
  67. UROSIN [Concomitant]
     Active Substance: ALLOPURINOL
     Dosage: 300 MG, QD (0-0-1)
     Route: 065
  68. TRITTICO [Concomitant]
     Active Substance: TRAZODONE HYDROCHLORIDE
     Dosage: 150 MG, QD(0-0-0-1)
  69. PANTOPRAZOL [Concomitant]
     Active Substance: PANTOPRAZOLE SODIUM
     Dosage: 20 MG, BID (1-0-1)
  70. ELOMEL [Concomitant]
     Indication: PRODUCT USED FOR UNKNOWN INDICATION
     Dosage: UNK
     Route: 065
  71. ELOMEL [Concomitant]
     Dosage: 1000 ML, BID (1X1)
     Route: 042
  72. ELOMEL [Concomitant]
     Dosage: 1000 ML, BID (1X1)
     Route: 042
  73. ELOMEL [Concomitant]
     Dosage: 1000 ML, BID (1X1)
     Route: 042
  74. ELOMEL [Concomitant]
     Dosage: 1000 ML, BID (1X1)
     Route: 042
  75. COLDISTOP [Concomitant]
     Dosage: UNK, TID
     Route: 045
  76. COLDISTOP [Concomitant]
     Dosage: UNK, TID
     Route: 045
  77. COLDISTOP [Concomitant]
     Dosage: UNK, TID
     Route: 045
  78. STERIMAR [Concomitant]
     Active Substance: SEA WATER
     Indication: PRODUCT USED FOR UNKNOWN INDICATION
     Dosage: SPRAY, UNK
     Route: 065
  79. STERIMAR [Concomitant]
     Active Substance: SEA WATER
     Indication: PRODUCT USED FOR UNKNOWN INDICATION
     Dosage: 5X DAILY
     Route: 045
  80. STERIMAR [Concomitant]
     Active Substance: SEA WATER
     Dosage: 5 OT, QD
  81. STERIMAR [Concomitant]
     Active Substance: SEA WATER
     Dosage: 5 OT, QD
     Route: 045
  82. CYKLOKAPRON [Concomitant]
     Active Substance: TRANEXAMIC ACID
     Indication: PRODUCT USED FOR UNKNOWN INDICATION
     Dosage: UNK
     Route: 042
     Dates: start: 20150202
  83. PARKEMED [Concomitant]
     Active Substance: MEFENAMIC ACID
     Dosage: UNK MG, UNK
     Route: 005
  84. CAUMADIN [Concomitant]
     Active Substance: WARFARIN SODIUM
     Dosage: UNK
     Route: 065
  85. MOXONIDIN [Concomitant]
     Active Substance: MOXONIDINE
     Dosage: UNK
     Route: 065
     Dates: start: 201302, end: 20150301
  86. PANTOPRAZOLE [Concomitant]
     Active Substance: PANTOPRAZOLE SODIUM
     Dosage: UNK
     Route: 065
     Dates: start: 20140505
  87. PANTOPRAZOLE [Concomitant]
     Active Substance: PANTOPRAZOLE SODIUM
     Dosage: UNK
     Route: 065
     Dates: start: 20140505
  88. EUTHYROX [Concomitant]
     Active Substance: LEVOTHYROXINE SODIUM
     Dosage: 1.25 DF QD (1 ? -0 -0)
  89. EUTHYROX [Concomitant]
     Active Substance: LEVOTHYROXINE SODIUM
     Dosage: 1.25 DF QD (1 ? -0 -0)
  90. DAFLON//DIOSMIN [Concomitant]
     Dosage: 1 DF, BID (1-0-1)
     Route: 065
  91. TEBOFORTAN [Concomitant]
     Active Substance: GINKGO
     Dosage: 1 DF, QD (0-1-0)
  92. EFECTIN [Concomitant]
     Active Substance: VENLAFAXINE HYDROCHLORIDE
     Dosage: 75 MG, QD (1-0-0)
     Route: 065
  93. EFECTIN [Concomitant]
     Active Substance: VENLAFAXINE HYDROCHLORIDE
     Dosage: 75 MG, QD (1-0-0)
  94. EFECTIN [Concomitant]
     Active Substance: VENLAFAXINE HYDROCHLORIDE
     Dosage: 75 MG, QD (1-0-0)
  95. LASIX [Concomitant]
     Active Substance: FUROSEMIDE
     Dosage: 40 MG, BIW (2X WEEKLY 1-0-0)
  96. LASIX [Concomitant]
     Active Substance: FUROSEMIDE
     Dosage: 40 MG, BIW (2X WEEKLY 1-0-0)
  97. SPIRIVA [Concomitant]
     Active Substance: TIOTROPIUM BROMIDE MONOHYDRATE
     Dosage: 18 UG, QD (1-0-0)
  98. VALSARCOMP [Concomitant]
     Active Substance: HYDROCHLOROTHIAZIDE\VALSARTAN
     Indication: HYPERTENSION
     Dosage: 160/25 MG
     Route: 065
  99. TRITTICO [Concomitant]
     Active Substance: TRAZODONE HYDROCHLORIDE
     Dosage: 150 MG, QD(0-0-0-1)
     Route: 065
  100. TRITTICO [Concomitant]
     Active Substance: TRAZODONE HYDROCHLORIDE
     Dosage: 150 MG, QD(0-0-0-1)
  101. TRITTICO [Concomitant]
     Active Substance: TRAZODONE HYDROCHLORIDE
     Dosage: 150 MG, QD(0-0-0-1)
  102. PANTOPRAZOL [Concomitant]
     Active Substance: PANTOPRAZOLE SODIUM
     Dosage: 20 MG, BID (1-0-1)
     Route: 065
  103. PANTOPRAZOL [Concomitant]
     Active Substance: PANTOPRAZOLE SODIUM
     Dosage: 20 MG, BID (1-0-1)
  104. PANTOPRAZOL [Concomitant]
     Active Substance: PANTOPRAZOLE SODIUM
     Dosage: 20 MG, BID (1-0-1)
  105. PANTOPRAZOL [Concomitant]
     Active Substance: PANTOPRAZOLE SODIUM
     Dosage: 20 MG, BID (1-0-1)
  106. ELOMEL [Concomitant]
     Dosage: 1000 ML, BID (1X1)
     Route: 042
  107. COLDISTOP [Concomitant]
     Dosage: UNK, TID
     Route: 045
  108. COLDISTOP [Concomitant]
     Dosage: UNK, TID
     Route: 045
  109. STERIMAR [Concomitant]
     Active Substance: SEA WATER
     Dosage: 5 OT, QD
  110. STERIMAR [Concomitant]
     Active Substance: SEA WATER
     Dosage: 5 OT, QD
  111. PARKEMED [Concomitant]
     Active Substance: MEFENAMIC ACID
     Dosage: 500 MG, TID
     Route: 005
  112. PARKEMED [Concomitant]
     Active Substance: MEFENAMIC ACID
     Route: 005
  113. PARKEMED [Concomitant]
     Active Substance: MEFENAMIC ACID
     Route: 005
  114. PARKEMED [Concomitant]
     Active Substance: MEFENAMIC ACID
     Route: 005
  115. MOXONIDIN [Concomitant]
     Active Substance: MOXONIDINE
     Indication: HYPERTENSION
     Dosage: UNK
     Route: 065
     Dates: start: 201302, end: 20150301
  116. MIFLONIDE [Concomitant]
     Active Substance: BUDESONIDE
     Indication: CHRONIC OBSTRUCTIVE PULMONARY DISEASE
     Dosage: UNK
     Route: 065
     Dates: start: 200711, end: 20140225
  117. PANTOPRAZOLE [Concomitant]
     Active Substance: PANTOPRAZOLE SODIUM
     Dosage: UNK
     Route: 065
     Dates: start: 20140505
  118. CIPROFLOXACIN. [Concomitant]
     Active Substance: CIPROFLOXACIN
     Indication: NASOPHARYNGITIS
     Dosage: UNK
     Route: 065
     Dates: start: 20150302, end: 20150308
  119. SINTROM [Suspect]
     Active Substance: ACENOCOUMAROL
     Indication: ATRIAL FIBRILLATION
     Dosage: 0.5 DF,0.5 TABLET DAILY 6X/WEEK, 1 TABLET / WEEK  (TUESDAYS)
     Route: 065
  120. DAFLON//DIOSMIN [Concomitant]
     Dosage: 1 DF, BID (1-0-1)
  121. DAFLON//DIOSMIN [Concomitant]
     Dosage: 1 DF, BID (1-0-1)
  122. EFECTIN [Concomitant]
     Active Substance: VENLAFAXINE HYDROCHLORIDE
     Indication: PRODUCT USED FOR UNKNOWN INDICATION
     Dosage: UNKNOWN
     Route: 065
  123. EFECTIN [Concomitant]
     Active Substance: VENLAFAXINE HYDROCHLORIDE
     Dosage: 75 MG, QD (1-0-0)
     Route: 065
  124. EFECTIN [Concomitant]
     Active Substance: VENLAFAXINE HYDROCHLORIDE
     Dosage: 75 MG, QD (1-0-0)
  125. VALSARCOMP [Concomitant]
     Active Substance: HYDROCHLOROTHIAZIDE\VALSARTAN
     Dosage: 1 DF, QD (1-0-0)
  126. TRITTICO [Concomitant]
     Active Substance: TRAZODONE HYDROCHLORIDE
     Indication: PRODUCT USED FOR UNKNOWN INDICATION
     Dosage: UNKNOWN
     Route: 065
  127. TRITTICO [Concomitant]
     Active Substance: TRAZODONE HYDROCHLORIDE
     Dosage: 150 MG, QD(0-0-0-1)
     Route: 065
  128. TRITTICO [Concomitant]
     Active Substance: TRAZODONE HYDROCHLORIDE
     Dosage: 150 MG, QD(0-0-0-1)
  129. TRITTICO [Concomitant]
     Active Substance: TRAZODONE HYDROCHLORIDE
     Dosage: 150 MG, QD(0-0-0-1)
  130. TRITTICO [Concomitant]
     Active Substance: TRAZODONE HYDROCHLORIDE
     Dosage: 150 MG, QD(0-0-0-1)
  131. TRITTICO [Concomitant]
     Active Substance: TRAZODONE HYDROCHLORIDE
     Dosage: 150 MG, QD(0-0-0-1)
  132. PANTOPRAZOL [Concomitant]
     Active Substance: PANTOPRAZOLE SODIUM
     Dosage: 20 MG, BID (1-0-1)
  133. PANTOPRAZOL [Concomitant]
     Active Substance: PANTOPRAZOLE SODIUM
     Dosage: 20 MG, BID (1-0-1)
  134. ELOMEL [Concomitant]
     Dosage: 1000 ML, BID (1X1)
     Route: 042
  135. ELOMEL [Concomitant]
     Dosage: 1000 ML, BID (1X1)
     Route: 042
  136. COLDISTOP [Concomitant]
     Indication: PRODUCT USED FOR UNKNOWN INDICATION
     Dosage: OIL, UNK
     Route: 065
  137. COLDISTOP [Concomitant]
     Dosage: UNK, TID
     Route: 045
  138. COLDISTOP [Concomitant]
     Dosage: UNK, TID
     Route: 045
  139. COLDISTOP [Concomitant]
     Dosage: UNK, TID
     Route: 045
  140. STERIMAR [Concomitant]
     Active Substance: SEA WATER
     Dosage: 5X DAILY
     Route: 045
  141. STERIMAR [Concomitant]
     Active Substance: SEA WATER
     Dosage: 5 OT, QD
  142. STERIMAR [Concomitant]
     Active Substance: SEA WATER
     Dosage: 5 OT, QD
  143. PARKEMED [Concomitant]
     Active Substance: MEFENAMIC ACID
     Dosage: UNK
     Route: 005
  144. PARKEMED [Concomitant]
     Active Substance: MEFENAMIC ACID
     Dosage: UNK
     Route: 005
  145. PARKEMED [Concomitant]
     Active Substance: MEFENAMIC ACID
     Dosage: 500 MG, TID
     Route: 005
  146. PARKEMED [Concomitant]
     Active Substance: MEFENAMIC ACID
     Route: 005
  147. EXFORGE [Concomitant]
     Active Substance: AMLODIPINE BESYLATE\VALSARTAN
     Indication: HYPERTENSION
     Dosage: UNK
     Route: 065
     Dates: start: 20150831
  148. JAKAVI [Suspect]
     Active Substance: RUXOLITINIB
     Dosage: 5 MG, UNK
     Route: 065
     Dates: start: 20140505, end: 20140617
  149. SINTROM [Suspect]
     Active Substance: ACENOCOUMAROL
     Dosage: UNK
     Route: 065
     Dates: start: 200510
  150. DIGIMERCK [Concomitant]
     Active Substance: DIGITOXIN
     Dosage: 0.1 MG, QD (1-0-0)
  151. DAFLON//DIOSMIN [Concomitant]
     Indication: PRODUCT USED FOR UNKNOWN INDICATION
     Dosage: 1 DF, UNK
     Route: 065
  152. TEBOFORTAN [Concomitant]
     Active Substance: GINKGO
     Dosage: 1 DF, QD (0-1-0)
  153. TEBOFORTAN [Concomitant]
     Active Substance: GINKGO
     Dosage: UNK
     Route: 065
     Dates: start: 20071114
  154. TEBOFORTAN [Concomitant]
     Active Substance: GINKGO
     Dosage: 1 DF, QD (0-1-0)
  155. EFECTIN [Concomitant]
     Active Substance: VENLAFAXINE HYDROCHLORIDE
     Dosage: 75 MG, QD (1-0-0)
  156. UROSIN [Concomitant]
     Active Substance: ALLOPURINOL
     Indication: BLOOD UREA INCREASED
     Dosage: 300 MG, QD (0-0-1)
     Route: 065
  157. TRITTICO [Concomitant]
     Active Substance: TRAZODONE HYDROCHLORIDE
     Dosage: 150 MG, QD(0-0-0-1)
     Route: 065
  158. TRITTICO [Concomitant]
     Active Substance: TRAZODONE HYDROCHLORIDE
     Dosage: 150 MG, QD(0-0-0-1)
  159. PANTOPRAZOL [Concomitant]
     Active Substance: PANTOPRAZOLE SODIUM
     Dosage: 20 MG, BID (1-0-1)
  160. ELOMEL [Concomitant]
     Dosage: 1000 ML, BID (1X1)
     Route: 042
  161. ELOMEL [Concomitant]
     Dosage: 1000 ML, BID (1X1)
     Route: 042
  162. ELOMEL [Concomitant]
     Dosage: 1000 ML, BID (1X1)
     Route: 042
  163. ELOMEL [Concomitant]
     Dosage: 1000 ML, BID (1X1)
     Route: 042
  164. COLDISTOP [Concomitant]
     Dosage: UNK, TID
     Route: 045
  165. COLDISTOP [Concomitant]
     Dosage: UNK, TID
     Route: 045
  166. STERIMAR [Concomitant]
     Active Substance: SEA WATER
     Dosage: 5 OT, QD
  167. STERIMAR [Concomitant]
     Active Substance: SEA WATER
     Dosage: 5 OT, QD
     Route: 045
  168. PARKEMED [Concomitant]
     Active Substance: MEFENAMIC ACID
     Indication: PAIN
     Dosage: 500 MG, UPTO 3X DAILY (TID)
     Route: 065
  169. PARKEMED [Concomitant]
     Active Substance: MEFENAMIC ACID
     Dosage: UNK
     Route: 005
  170. CAUMADIN [Concomitant]
     Active Substance: WARFARIN SODIUM
     Indication: PRODUCT USED FOR UNKNOWN INDICATION
     Dosage: UNK
     Route: 065
  171. MIFLONIDE [Concomitant]
     Active Substance: BUDESONIDE
     Dosage: UNK
     Route: 065
     Dates: start: 20140701
  172. PROSPAN [Concomitant]
     Active Substance: IVY EXTRACT
     Indication: COUGH
     Dosage: UNK
     Route: 065
     Dates: start: 20150831
  173. EUTHYROX [Concomitant]
     Active Substance: LEVOTHYROXINE SODIUM
     Dosage: 1.25 DF QD (1 ? -0 -0)
  174. NOMEXOR [Concomitant]
     Active Substance: NEBIVOLOL HYDROCHLORIDE
     Indication: HYPERTENSION
     Dosage: 5 MG, BID (1-0-1)
     Route: 065
     Dates: start: 20090424
  175. EFECTIN [Concomitant]
     Active Substance: VENLAFAXINE HYDROCHLORIDE
     Dosage: 75 MG, QD (1-0-0)
  176. VALSARCOMP [Concomitant]
     Active Substance: HYDROCHLOROTHIAZIDE\VALSARTAN
     Dosage: UNK
     Route: 065
  177. VALSARCOMP [Concomitant]
     Active Substance: HYDROCHLOROTHIAZIDE\VALSARTAN
     Dosage: 1 DF, QD (1-0-0)
  178. TRITTICO [Concomitant]
     Active Substance: TRAZODONE HYDROCHLORIDE
     Dosage: 150 MG, QD(0-0-0-1)
  179. TRITTICO [Concomitant]
     Active Substance: TRAZODONE HYDROCHLORIDE
     Dosage: 150 MG, QD(0-0-0-1)
  180. PANTOPRAZOL [Concomitant]
     Active Substance: PANTOPRAZOLE SODIUM
     Dosage: 20 MG, BID (1-0-1)
  181. PANTOPRAZOL [Concomitant]
     Active Substance: PANTOPRAZOLE SODIUM
     Dosage: 20 MG, BID (1-0-1)
  182. ELOMEL [Concomitant]
     Dosage: 1000 ML, BID (1X1)
     Route: 042
  183. ELOMEL [Concomitant]
     Dosage: 1000 ML, BID (1X1)
     Route: 042
  184. STERIMAR [Concomitant]
     Active Substance: SEA WATER
     Dosage: 5 OT, QD
  185. STERIMAR [Concomitant]
     Active Substance: SEA WATER
     Dosage: 5 OT, QD
     Route: 045
  186. STERIMAR [Concomitant]
     Active Substance: SEA WATER
     Dosage: 5 OT, QD
     Route: 045
  187. STERIMAR [Concomitant]
     Active Substance: SEA WATER
     Dosage: 5 OT, QD
     Route: 045
  188. PARKEMED [Concomitant]
     Active Substance: MEFENAMIC ACID
     Dosage: UNK
     Route: 005
  189. PARKEMED [Concomitant]
     Active Substance: MEFENAMIC ACID
     Dosage: UNK
     Route: 005
  190. PARKEMED [Concomitant]
     Active Substance: MEFENAMIC ACID
     Route: 005
  191. CLINDAMYCIN. [Concomitant]
     Active Substance: CLINDAMYCIN
     Indication: INFECTION
     Dosage: UNK
     Route: 065
     Dates: start: 20051104, end: 20151110
  192. JAKAVI [Suspect]
     Active Substance: RUXOLITINIB
     Dosage: UNK
     Route: 065
     Dates: start: 20130218
  193. JAKAVI [Suspect]
     Active Substance: RUXOLITINIB
     Dosage: 15 MG, UNK
     Route: 065
     Dates: start: 20130626, end: 20130827
  194. JAKAVI [Suspect]
     Active Substance: RUXOLITINIB
     Dosage: 10 MG, UNK
     Route: 065
     Dates: start: 20130828, end: 20140504
  195. EUTHYROX [Concomitant]
     Active Substance: LEVOTHYROXINE SODIUM
     Dosage: 1.25 DF QD (1 ? -0 -0)
  196. DIGIMERCK [Concomitant]
     Active Substance: DIGITOXIN
     Dosage: 0.1 MG, QD (1-0-0)
     Route: 065
  197. TEBOFORTAN [Concomitant]
     Active Substance: GINKGO
     Dosage: 1 DF, QD (0-1-0)
  198. EFECTIN [Concomitant]
     Active Substance: VENLAFAXINE HYDROCHLORIDE
     Dosage: 75 MG, QD (1-0-0)
  199. EFECTIN [Concomitant]
     Active Substance: VENLAFAXINE HYDROCHLORIDE
     Dosage: 75 MG, QD (1-0-0)
  200. SPIRIVA [Concomitant]
     Active Substance: TIOTROPIUM BROMIDE MONOHYDRATE
     Dosage: 18 UG, QD (1-0-0)
     Route: 065
  201. VALSARCOMP [Concomitant]
     Active Substance: HYDROCHLOROTHIAZIDE\VALSARTAN
     Dosage: UNK
     Route: 065
     Dates: start: 20130410
  202. VALSARCOMP [Concomitant]
     Active Substance: HYDROCHLOROTHIAZIDE\VALSARTAN
     Dosage: 1 DF, QD
  203. VALSARCOMP [Concomitant]
     Active Substance: HYDROCHLOROTHIAZIDE\VALSARTAN
     Dosage: 1 DF, QD (1-0-0)
  204. UROSIN [Concomitant]
     Active Substance: ALLOPURINOL
     Dosage: UNK
  205. UROSIN [Concomitant]
     Active Substance: ALLOPURINOL
     Dosage: UNK
  206. TRITTICO [Concomitant]
     Active Substance: TRAZODONE HYDROCHLORIDE
     Dosage: 150 MG, QD(0-0-0-1)
  207. PANTOPRAZOL [Concomitant]
     Active Substance: PANTOPRAZOLE SODIUM
     Dosage: 20 MG, BID (1-0-1)
     Route: 065
  208. PANTOPRAZOL [Concomitant]
     Active Substance: PANTOPRAZOLE SODIUM
     Dosage: 20 MG, BID (1-0-1)
     Route: 065
  209. PANTOPRAZOL [Concomitant]
     Active Substance: PANTOPRAZOLE SODIUM
     Dosage: 20 MG, BID (1-0-1)
  210. PANTOPRAZOL [Concomitant]
     Active Substance: PANTOPRAZOLE SODIUM
     Dosage: 20 MG, BID (1-0-1)
  211. ELOMEL [Concomitant]
     Dosage: 1000 ML, BID (1X1)
     Route: 042
  212. ELOMEL [Concomitant]
     Dosage: 1000 ML, BID (1X1)
     Route: 042
  213. ELOMEL [Concomitant]
     Dosage: 1000 ML, BID (1X1)
     Route: 042
  214. COLDISTOP [Concomitant]
     Dosage: UNK, TID
     Route: 045
  215. STERIMAR [Concomitant]
     Active Substance: SEA WATER
     Dosage: 5X DAILY
     Route: 045
  216. STERIMAR [Concomitant]
     Active Substance: SEA WATER
     Dosage: 5 OT, QD
     Route: 045
  217. STERIMAR [Concomitant]
     Active Substance: SEA WATER
     Dosage: 5 OT, QD
  218. PANTOPRAZOLE [Concomitant]
     Active Substance: PANTOPRAZOLE SODIUM
     Dosage: UNK
     Route: 065
     Dates: start: 20140505
  219. PANTOPRAZOLE [Concomitant]
     Active Substance: PANTOPRAZOLE SODIUM
     Dosage: UNK
     Route: 065
     Dates: start: 20140505

REACTIONS (39)
  - General physical health deterioration [Recovered/Resolved]
  - Haemoglobin decreased [Unknown]
  - Faeces soft [Unknown]
  - Renal cyst [Unknown]
  - Epistaxis [Recovered/Resolved]
  - Pleural effusion [Unknown]
  - Left atrial enlargement [Unknown]
  - Dizziness [Unknown]
  - Nasopharyngitis [Recovered/Resolved]
  - Polyneuropathy [Unknown]
  - Cough [Unknown]
  - Bronchitis [Recovered/Resolved]
  - Aortic arteriosclerosis [Unknown]
  - Hepatomegaly [Unknown]
  - Nasopharyngitis [Recovered/Resolved]
  - Mitral valve incompetence [Unknown]
  - Red blood cell count increased [Unknown]
  - Diarrhoea [Unknown]
  - Ascites [Unknown]
  - Blood creatinine increased [Unknown]
  - Death [Fatal]
  - Ventricular arrhythmia [Unknown]
  - Pain [Unknown]
  - Urethral prolapse [Unknown]
  - Urinary tract infection [Unknown]
  - Glomerular filtration rate decreased [Unknown]
  - Visual impairment [Unknown]
  - Gastrointestinal haemorrhage [Recovered/Resolved]
  - Lymphocyte count increased [Unknown]
  - Thrombocytosis [Recovering/Resolving]
  - Blood potassium increased [Unknown]
  - Cholecystitis [Unknown]
  - Cardiac failure [Unknown]
  - Scoliosis [Unknown]
  - Blood urea increased [Unknown]
  - Asthenia [Unknown]
  - Fatigue [Unknown]
  - Pyrexia [Unknown]
  - Platelet count increased [Unknown]

NARRATIVE: CASE EVENT DATE: 20130626
